FAERS Safety Report 24351731 (Version 1)
Quarter: 2024Q3

REPORT INFORMATION
  Report Type: Spontaneous
  Country: CN (occurrence: CN)
  Receive Date: 20240923
  Receipt Date: 20240923
  Transmission Date: 20241017
  Serious: No
  Sender: ROCHE
  Company Number: CN-ROCHE-3563575

PATIENT
  Age: 51 Year
  Sex: Female
  Weight: 67.0 kg

DRUGS (4)
  1. HERCEPTIN [Suspect]
     Active Substance: TRASTUZUMAB
     Indication: Gastric cancer
     Dosage: POWDER INJECTION
     Route: 041
     Dates: start: 20240509
  2. SODIUM CHLORIDE [Concomitant]
     Active Substance: SODIUM CHLORIDE
     Route: 042
     Dates: start: 20240509
  3. PROMETHAZINE HYDROCHLORIDE [Concomitant]
     Active Substance: PROMETHAZINE HYDROCHLORIDE
     Indication: Antiallergic therapy
     Route: 030
     Dates: start: 20240509
  4. DEXAMETHASONE SODIUM PHOSPHATE [Concomitant]
     Active Substance: DEXAMETHASONE PHOSPHATE\DEXAMETHASONE SODIUM PHOSPHATE
     Indication: Antiallergic therapy
     Route: 030
     Dates: start: 20240509

REACTIONS (2)
  - Pyrexia [Recovered/Resolved]
  - Chills [Recovering/Resolving]

NARRATIVE: CASE EVENT DATE: 20240509
